FAERS Safety Report 18658081 (Version 1)
Quarter: 2020Q4

REPORT INFORMATION
  Report Type: Spontaneous
  Country: RO (occurrence: RO)
  Receive Date: 20201223
  Receipt Date: 20201223
  Transmission Date: 20210114
  Serious: Yes (Other)
  Sender: FDA-Public Use
  Company Number: NVSC2020RO327622

PATIENT
  Age: 50 Year
  Sex: Female

DRUGS (1)
  1. KISQALI [Suspect]
     Active Substance: RIBOCICLIB
     Indication: BREAST CANCER
     Dosage: 600 MG, QD
     Route: 065
     Dates: start: 20190507

REACTIONS (5)
  - Cerebral cyst haemorrhage [Recovered/Resolved]
  - Headache [Unknown]
  - Loss of consciousness [Unknown]
  - General physical health deterioration [Unknown]
  - Nausea [Unknown]

NARRATIVE: CASE EVENT DATE: 20190529
